FAERS Safety Report 7382516-1 (Version None)
Quarter: 2011Q1

REPORT INFORMATION
  Report Type: 
  Country: None (occurrence: None)
  Receive Date: 20110329
  Receipt Date: 20110303
  Transmission Date: 20110831
  Serious: Yes (Other)
  Sender: FDA-Public Use
  Company Number: US-BAYER-201037468NA

PATIENT
  Sex: Female
  Weight: 73 kg

DRUGS (10)
  1. PHENTERMINE [Concomitant]
     Dosage: 37.5 MG, UNK
     Route: 048
     Dates: start: 20070626
  2. YASMIN [Suspect]
     Indication: PREMENSTRUAL SYNDROME
     Dosage: UNK
     Route: 048
     Dates: start: 20050101, end: 20080201
  3. AMITIZA [Concomitant]
     Dosage: 24 UNK, UNK
  4. ALPRAZOLAM [Concomitant]
     Dosage: 0.5 MG, TID
     Route: 048
     Dates: start: 20070727
  5. MIRALAX [Concomitant]
     Dosage: UNK UNK, PRN
     Route: 048
     Dates: start: 20080128
  6. SINGULAIR [Concomitant]
     Dosage: 10 MG, UNK
     Route: 048
     Dates: start: 20070605
  7. SULFAMETHOXAZOLE [Concomitant]
     Dosage: UNK UNK, BID
     Route: 048
     Dates: start: 20070727
  8. YAZ [Suspect]
     Indication: PREMENSTRUAL SYNDROME
     Dosage: UNK
     Route: 048
     Dates: start: 20050101, end: 20080201
  9. PROTONIX [Concomitant]
     Dosage: 40 MG, QD
     Route: 048
     Dates: start: 20070517
  10. FLUTICASONE PROPIONATE [Concomitant]
     Dosage: UNK
     Route: 045
     Dates: start: 20070518

REACTIONS (4)
  - PAIN [None]
  - ABDOMINAL PAIN UPPER [None]
  - CHOLELITHIASIS [None]
  - CHOLECYSTITIS CHRONIC [None]
